FAERS Safety Report 7759722-7 (Version None)
Quarter: 2011Q3

REPORT INFORMATION
  Report Type: 
  Country: None (occurrence: None)
  Receive Date: 20110919
  Receipt Date: 20110804
  Transmission Date: 20111222
  Serious: Yes (Hospitalization)
  Sender: FDA-Public Use
  Company Number: NZ-UCBSA-040412

PATIENT
  Sex: Female
  Weight: 80.3 kg

DRUGS (3)
  1. OMEPRAZOLE [Concomitant]
     Indication: PRODUCT USED FOR UNKNOWN INDICATION
     Route: 048
     Dates: start: 20110701
  2. CERTOLIZUMAB PEGOL [Suspect]
     Indication: CROHN'S DISEASE
     Route: 058
     Dates: start: 20101125, end: 20110701
  3. METHYLPREDNISOLONE [Concomitant]
     Indication: CROHN'S DISEASE
     Route: 042
     Dates: start: 20110701, end: 20110704

REACTIONS (1)
  - CLOSTRIDIUM DIFFICILE COLITIS [None]
